FAERS Safety Report 20854991 (Version 1)
Quarter: 2022Q2

REPORT INFORMATION
  Report Type: Report from Study
  Country: US (occurrence: US)
  Receive Date: 20220520
  Receipt Date: 20220520
  Transmission Date: 20220721
  Serious: Yes (Other)
  Sender: FDA-Public Use
  Company Number: US-ABBVIE-22K-163-4397096-00

PATIENT
  Sex: Female

DRUGS (1)
  1. HUMIRA [Suspect]
     Active Substance: ADALIMUMAB
     Indication: Colitis ulcerative
     Dosage: CF
     Route: 058

REACTIONS (10)
  - Precancerous condition [Unknown]
  - Medical procedure [Unknown]
  - Colitis [Unknown]
  - Haemorrhage [Unknown]
  - Respiratory disorder [Unknown]
  - Post procedural swelling [Unknown]
  - Ulcer [Unknown]
  - Tongue injury [Unknown]
  - Lip injury [Unknown]
  - COVID-19 [Recovered/Resolved]

NARRATIVE: CASE EVENT DATE: 20220101
